FAERS Safety Report 8983809 (Version 2)
Quarter: 2013Q1

REPORT INFORMATION
  Report Type: Spontaneous
  Country: SE (occurrence: SE)
  Receive Date: 20121224
  Receipt Date: 20130116
  Transmission Date: 20140127
  Serious: Yes (Other)
  Sender: FDA-Public Use
  Company Number: SE-ROCHE-1168737

PATIENT
  Age: 39 Year
  Sex: Female

DRUGS (7)
  1. COPEGUS [Suspect]
     Indication: AMYOTROPHIC LATERAL SCLEROSIS
     Dosage: DOSE REGIMEN: 1GMD
     Route: 048
     Dates: start: 20110131, end: 20120214
  2. PLECONARIL [Suspect]
     Indication: AMYOTROPHIC LATERAL SCLEROSIS
     Dosage: DRUG: PLECONARIL 25 MG/ML, DOSE REGIMEN : 1.2 GMD
     Route: 048
     Dates: start: 20110131, end: 20120214
  3. PLECONARIL [Suspect]
     Indication: OFF LABEL USE
  4. EGAZIL [Suspect]
     Indication: AMYOTROPHIC LATERAL SCLEROSIS
     Route: 048
     Dates: start: 20110403, end: 20110412
  5. COCILLANA-ETYFIN [Concomitant]
  6. KAVEPENIN [Concomitant]
  7. RILUTEK [Concomitant]

REACTIONS (1)
  - Venous thrombosis limb [Recovered/Resolved]
